FAERS Safety Report 23057316 (Version 1)
Quarter: 2023Q4

REPORT INFORMATION
  Report Type: Spontaneous
  Country: US (occurrence: US)
  Receive Date: 20231012
  Receipt Date: 20231012
  Transmission Date: 20240110
  Serious: Yes (Hospitalization)
  Sender: FDA-Public Use
  Company Number: US-AMGEN-USASP2023180828

PATIENT
  Age: 13 Year
  Sex: Female

DRUGS (2)
  1. RITUXIMAB [Suspect]
     Active Substance: RITUXIMAB
     Indication: Encephalitis autoimmune
     Dosage: UNK
     Route: 042
  2. HUMAN IMMUNOGLOBULIN G [Concomitant]
     Active Substance: HUMAN IMMUNOGLOBULIN G
     Indication: Encephalitis autoimmune
     Route: 042

REACTIONS (7)
  - Cardiac arrest [Unknown]
  - Pneumatosis intestinalis [Unknown]
  - Dystonia [Unknown]
  - Norovirus infection [Unknown]
  - Dyskinesia [Recovered/Resolved]
  - Feeding intolerance [Unknown]
  - Off label use [Unknown]
